FAERS Safety Report 16930275 (Version 1)
Quarter: 2019Q4

REPORT INFORMATION
  Report Type: Spontaneous
  Country: US (occurrence: US)
  Receive Date: 20190826
  Receipt Date: 20190826
  Transmission Date: 20200122
  Serious: Yes (Death)
  Sender: FDA-Public Use
  Company Number: None

PATIENT
  Age: 60 Year
  Sex: Female

DRUGS (3)
  1. CYCLOSPORINE NON-MODIFIED 25 MG [Suspect]
     Active Substance: CYCLOSPORINE
     Indication: BONE MARROW FAILURE
  2. CYCLOSPORINE NON-MODIFIED 25 MG [Suspect]
     Active Substance: CYCLOSPORINE
     Indication: BONE MARROW FAILURE
     Route: 048
  3. PREVYMIS [Suspect]
     Active Substance: LETERMOVIR
     Indication: DIFFUSE LARGE B-CELL LYMPHOMA
     Route: 048
     Dates: start: 20190123

REACTIONS (1)
  - Death [None]

NARRATIVE: CASE EVENT DATE: 20190826
